FAERS Safety Report 10379130 (Version 1)
Quarter: 2014Q3

REPORT INFORMATION
  Report Type: Spontaneous
  Country: US (occurrence: None)
  Receive Date: 20140811
  Receipt Date: 20140811
  Transmission Date: 20150326
  Serious: Yes (Life-Threatening, Disabling)
  Sender: FDA-Public Use
  Company Number: None

PATIENT
  Age: 89 Year
  Sex: Female
  Weight: 73.03 kg

DRUGS (1)
  1. NAMENDA XR [Suspect]
     Active Substance: MEMANTINE HYDROCHLORIDE
     Indication: DEMENTIA ALZHEIMER^S TYPE
     Route: 048
     Dates: start: 20140308, end: 20140807

REACTIONS (16)
  - Anxiety [None]
  - Red blood cells urine positive [None]
  - Faecal incontinence [None]
  - Blood creatinine increased [None]
  - Dizziness [None]
  - Movement disorder [None]
  - Blood urea increased [None]
  - Blood chloride increased [None]
  - Urine bilirubin increased [None]
  - Dehydration [None]
  - Nightmare [None]
  - Headache [None]
  - Overdose [None]
  - Oedema [None]
  - Blood sodium increased [None]
  - Confusional state [None]

NARRATIVE: CASE EVENT DATE: 20140801
